FAERS Safety Report 19545136 (Version 1)
Quarter: 2021Q3

REPORT INFORMATION
  Report Type: Spontaneous
  Country: DE (occurrence: DE)
  Receive Date: 20210714
  Receipt Date: 20210714
  Transmission Date: 20211014
  Serious: Yes (Hospitalization)
  Sender: FDA-Public Use
  Company Number: DE-DRREDDYS-SPO/GER/21/0137498

PATIENT
  Age: 63 Year
  Sex: Male
  Weight: 90 kg

DRUGS (4)
  1. NICOTINELL 14MG/24STUNDEN [Concomitant]
     Indication: PRODUCT USED FOR UNKNOWN INDICATION
     Dosage: TAGLICH, PFLASTER TRANSDERMAL (DAILY, TRANSDERMAL PATCH)
  2. ERYFER 100 [Concomitant]
     Indication: PRODUCT USED FOR UNKNOWN INDICATION
  3. REKAWAN 1000MG [Concomitant]
     Indication: PRODUCT USED FOR UNKNOWN INDICATION
     Dosage: 2?2?2?0, TABLET
  4. IBUPROFEN. [Suspect]
     Active Substance: IBUPROFEN
     Indication: PRODUCT USED FOR UNKNOWN INDICATION
     Dosage: 400 MG, ONE TO THREE TIMES DAILY IN THE LAST WEEK, TABLETS

REACTIONS (6)
  - General physical health deterioration [Unknown]
  - Product prescribing error [Unknown]
  - Contraindicated product administered [Unknown]
  - Haematuria [Unknown]
  - Nocturia [Unknown]
  - Oedema peripheral [Unknown]
